FAERS Safety Report 8319403-8 (Version None)
Quarter: 2012Q2

REPORT INFORMATION
  Report Type: 
  Country: None (occurrence: None)
  Receive Date: 20120427
  Receipt Date: 20120423
  Transmission Date: 20120825
  Serious: Yes (Death)
  Sender: FDA-Public Use
  Company Number: PHHY2012US035277

PATIENT
  Age: 45 Year
  Sex: Female

DRUGS (7)
  1. TIZANIDINE HYDROCHLORIDE [Suspect]
     Route: 048
  2. CLONAZEPAM [Suspect]
  3. METOCLOPRAMIDE [Suspect]
     Route: 048
  4. LAXATIVES [Concomitant]
  5. PHENOBARBITAL TAB [Suspect]
  6. CARISOPRODOL [Suspect]
  7. BUTALBITAL [Suspect]

REACTIONS (1)
  - COMPLETED SUICIDE [None]
